FAERS Safety Report 25067239 (Version 1)
Quarter: 2025Q1

REPORT INFORMATION
  Report Type: Spontaneous
  Country: CN (occurrence: None)
  Receive Date: 20250312
  Receipt Date: 20250312
  Transmission Date: 20250408
  Serious: Yes (Life-Threatening, Hospitalization)
  Sender: CMP PHARMA
  Company Number: CN-CMPPHARMA-000489

PATIENT
  Age: 32 Year
  Sex: Female

DRUGS (1)
  1. NORLIQVA [Suspect]
     Active Substance: AMLODIPINE
     Indication: Product used for unknown indication
     Route: 048

REACTIONS (4)
  - Cardiogenic shock [Recovered/Resolved]
  - Toxicity to various agents [Recovered/Resolved]
  - Distributive shock [Recovered/Resolved]
  - Intentional overdose [Unknown]
